FAERS Safety Report 23859633 (Version 2)
Quarter: 2024Q2

REPORT INFORMATION
  Report Type: Spontaneous
  Country: AU (occurrence: None)
  Receive Date: 20240515
  Receipt Date: 20240625
  Transmission Date: 20240716
  Serious: Yes (Death)
  Sender: FDA-Public Use
  Company Number: 2024A112294

PATIENT
  Sex: Male

DRUGS (1)
  1. SYMBICORT [Suspect]
     Active Substance: BUDESONIDE\FORMOTEROL FUMARATE DIHYDRATE
     Indication: Asthma
     Dosage: 200/6UG/D, UNKNOWN UNKNOWN
     Route: 055

REACTIONS (3)
  - Death [Fatal]
  - Device use issue [Unknown]
  - Device malfunction [Unknown]
